FAERS Safety Report 8911632 (Version 1)
Quarter: 2012Q4

REPORT INFORMATION
  Report Type: 
  Country: US (occurrence: US)
  Receive Date: 20121115
  Receipt Date: 20121115
  Transmission Date: 20130627
  Serious: No
  Sender: FDA-Public Use
  Company Number: US-ORACLE-2011P1013399

PATIENT
  Age: 69 Year
  Sex: Male
  Weight: 70.31 kg

DRUGS (1)
  1. MUPIROCIN [Suspect]
     Route: 061
     Dates: start: 20111125

REACTIONS (1)
  - Application site pain [Not Recovered/Not Resolved]
